FAERS Safety Report 4928246-4 (Version None)
Quarter: 2006Q1

REPORT INFORMATION
  Report Type: 
  Country: None (occurrence: None)
  Receive Date: 20060127
  Receipt Date: 20051214
  Transmission Date: 20060701
  Serious: Yes (Other)
  Sender: FDA-Public Use
  Company Number: 2005168713

PATIENT
  Age: 56 Year
  Sex: Female
  Weight: 62.5964 kg

DRUGS (2)
  1. LYRICA [Suspect]
     Indication: FACIAL PAIN
     Dosage: 75 (25 MG, 3 IN 1 D), ORAL
     Route: 048
     Dates: start: 20051125, end: 20051201
  2. LAMICTAL [Concomitant]

REACTIONS (4)
  - CHEST PAIN [None]
  - DRUG INEFFECTIVE [None]
  - FATIGUE [None]
  - FEELING ABNORMAL [None]
